FAERS Safety Report 7385394-X (Version None)
Quarter: 2011Q1

REPORT INFORMATION
  Report Type: 
  Country: None (occurrence: None)
  Receive Date: 20110330
  Receipt Date: 20110126
  Transmission Date: 20110831
  Serious: No
  Sender: FDA-Public Use
  Company Number: US-MYLANLABS-2011S1001969

PATIENT
  Age: 44 Year
  Sex: Male

DRUGS (2)
  1. EMSAM [Suspect]
     Indication: FATIGUE
     Dosage: CHANGED Q24H
     Route: 062
     Dates: start: 20101201
  2. CLONAZEPAM [Concomitant]

REACTIONS (3)
  - OFF LABEL USE [None]
  - FATIGUE [None]
  - DRUG EFFECT DECREASED [None]
